FAERS Safety Report 24799211 (Version 2)
Quarter: 2025Q1

REPORT INFORMATION
  Report Type: Report from Study
  Country: EG (occurrence: EG)
  Receive Date: 20250102
  Receipt Date: 20250117
  Transmission Date: 20250408
  Serious: Yes (Hospitalization)
  Sender: NOVARTIS
  Company Number: EG-002147023-NVSC2025EG000460

PATIENT
  Age: 37 Year
  Sex: Female

DRUGS (3)
  1. TASIGNA [Suspect]
     Active Substance: NILOTINIB
     Indication: Chronic myeloid leukaemia
     Dosage: (150 MG) 4 DOSAGE FORM, QD WITH REGIMEN 2 CAPSULES EVERY 12 HOURS
     Route: 048
     Dates: start: 20241103, end: 20241206
  2. ALLOPURINOL [Concomitant]
     Active Substance: ALLOPURINOL
     Indication: Product used for unknown indication
     Dosage: 300 MG, QD (TABLET)
     Route: 065
     Dates: end: 20241206
  3. ASPIRIN [Concomitant]
     Active Substance: ASPIRIN
     Indication: Product used for unknown indication
     Dosage: 81 MG, QD  (TABLET)
     Route: 065
     Dates: end: 20241206

REACTIONS (5)
  - Dyspnoea [Recovered/Resolved]
  - Asthma [Recovered/Resolved]
  - Injection site abscess [Recovered/Resolved]
  - Platelet count increased [Unknown]
  - White blood cell count abnormal [Unknown]

NARRATIVE: CASE EVENT DATE: 20241117
